FAERS Safety Report 4526823-6 (Version None)
Quarter: 2004Q4

REPORT INFORMATION
  Report Type: 
  Country: None (occurrence: None)
  Receive Date: 20041213
  Receipt Date: 20041130
  Transmission Date: 20050328
  Serious: Yes (Other)
  Sender: FDA-Public Use
  Company Number: 2004101387

PATIENT
  Sex: Female

DRUGS (4)
  1. NORVASC [Suspect]
     Indication: ILL-DEFINED DISORDER
     Dosage: (10 MG), ORAL
     Route: 048
  2. ZOLOFT [Suspect]
     Indication: DEPRESSION
     Dosage: 100 MG (100 MG, 1 IN 1 D), ORAL
     Route: 048
     Dates: start: 20040728, end: 20040801
  3. KAOPECTATE (PECTIN, KAOLIN) [Suspect]
     Indication: DIARRHOEA
     Dates: start: 20040801
  4. LOPERAMIDE HYDROCHLORIDE [Suspect]
     Indication: DIARRHOEA

REACTIONS (6)
  - ABDOMINAL DISCOMFORT [None]
  - DIARRHOEA [None]
  - DRUG INEFFECTIVE [None]
  - MENISCUS LESION [None]
  - PITTING OEDEMA [None]
  - POST PROCEDURAL COMPLICATION [None]
